FAERS Safety Report 8443730-7 (Version None)
Quarter: 2012Q2

REPORT INFORMATION
  Report Type: 
  Country: None (occurrence: None)
  Receive Date: 20120618
  Receipt Date: 20120606
  Transmission Date: 20120825
  Serious: Yes (Other)
  Sender: FDA-Public Use
  Company Number: US-ELI_LILLY_AND_COMPANY-US201205005039

PATIENT
  Age: 41 Year
  Sex: Female

DRUGS (2)
  1. CYMBALTA [Suspect]
     Indication: NEUROPATHY PERIPHERAL
     Dosage: 20 MG, UNK
     Dates: start: 20120503, end: 20120509
  2. CHEMOTHERAPEUTICS [Concomitant]
     Indication: NON-SMALL CELL LUNG CANCER

REACTIONS (2)
  - PLATELET COUNT DECREASED [None]
  - OFF LABEL USE [None]
